FAERS Safety Report 6593007-X (Version None)
Quarter: 2010Q1

REPORT INFORMATION
  Report Type: 
  Country: None (occurrence: None)
  Receive Date: 20100218
  Receipt Date: 20100218
  Transmission Date: 20100710
  Serious: Yes (Hospitalization)
  Sender: FDA-Public Use
  Company Number: None

PATIENT
  Age: 51 Year
  Sex: Male
  Weight: 92.5338 kg

DRUGS (13)
  1. ARIPIPRAZOLE [Suspect]
     Dosage: 10 MG PO
     Route: 048
  2. TESTOSTERONE PATCH [Concomitant]
  3. LEVOTHYROXINE SODIUM [Concomitant]
  4. ROBITUSSIN DM [Concomitant]
  5. BENZTROPINE MESYLATE [Concomitant]
  6. HALOPERIDOL [Concomitant]
  7. LORAZEPAM [Concomitant]
  8. RANTIDINE [Concomitant]
  9. BISACODYL EC [Concomitant]
  10. CALCIUM [Concomitant]
  11. DOCUSATE [Concomitant]
  12. MULTI-VITAMIN [Concomitant]
  13. ARIPIPRAZOLE [Concomitant]

REACTIONS (4)
  - BLOOD PRESSURE INCREASED [None]
  - CATATONIA [None]
  - HEART RATE INCREASED [None]
  - POSTURING [None]
